FAERS Safety Report 12369046 (Version 1)
Quarter: 2016Q2

REPORT INFORMATION
  Report Type: Spontaneous
  Country: GB (occurrence: GB)
  Receive Date: 20160513
  Receipt Date: 20160513
  Transmission Date: 20160815
  Serious: Yes (Other)
  Sender: FDA-Public Use
  Company Number: GB-BAUSCH-BL-2016-010851

PATIENT
  Age: 16 Year
  Sex: Male

DRUGS (4)
  1. DARUNAVIR [Concomitant]
     Active Substance: DARUNAVIR
     Indication: PRODUCT USED FOR UNKNOWN INDICATION
  2. COMBIVIR [Concomitant]
     Active Substance: LAMIVUDINE\ZIDOVUDINE
     Indication: PRODUCT USED FOR UNKNOWN INDICATION
  3. RITONAVIR. [Suspect]
     Active Substance: RITONAVIR
     Indication: ACUTE HIV INFECTION
     Route: 048
  4. DEXAMETHASONE. [Suspect]
     Active Substance: DEXAMETHASONE
     Indication: KERATITIS
     Route: 047

REACTIONS (3)
  - Adrenal suppression [Recovered/Resolved]
  - Cushingoid [Unknown]
  - Cushing^s syndrome [Unknown]
